FAERS Safety Report 5234200-8 (Version None)
Quarter: 2007Q1

REPORT INFORMATION
  Report Type: 
  Country: None (occurrence: None)
  Receive Date: 20070208
  Receipt Date: 20070129
  Transmission Date: 20070707
  Serious: Yes (Other)
  Sender: FDA-Public Use
  Company Number: 235746

PATIENT
  Age: 77 Year
  Sex: Female
  Weight: 81.2 kg

DRUGS (3)
  1. LUCENTIS [Suspect]
     Indication: MACULAR DEGENERATION
     Dosage: 0.5 MG
     Dates: start: 20061201, end: 20070117
  2. LISINOPRIL [Concomitant]
  3. GENERIC COMPONENT (S) NOT KNOWN (GENERIC COMPONENT (S) NOT KNOWN) [Concomitant]

REACTIONS (4)
  - BLOOD PRESSURE INCREASED [None]
  - DIABETES MELLITUS [None]
  - DIZZINESS [None]
  - FALL [None]
